FAERS Safety Report 4658810-1 (Version None)
Quarter: 2005Q2

REPORT INFORMATION
  Report Type: 
  Country: None (occurrence: None)
  Receive Date: 20050511
  Receipt Date: 20050503
  Transmission Date: 20051028
  Serious: Yes (Life-Threatening)
  Sender: FDA-Public Use
  Company Number: FR-ROCHE-403649

PATIENT
  Age: 35 Year
  Sex: Female
  Weight: 90 kg

DRUGS (4)
  1. RIVOTRIL [Suspect]
     Route: 048
     Dates: end: 20041213
  2. DEPAKOTE [Suspect]
     Route: 048
     Dates: start: 20041104, end: 20041213
  3. RISPERDAL [Suspect]
     Route: 048
     Dates: start: 20041102, end: 20041213
  4. DIAMICRON [Suspect]
     Route: 048
     Dates: start: 20041202, end: 20041220

REACTIONS (7)
  - DERMATITIS EXFOLIATIVE [None]
  - DRUG RASH WITH EOSINOPHILIA AND SYSTEMIC SYMPTOMS [None]
  - EOSINOPHILIA [None]
  - FACE OEDEMA [None]
  - HEPATITIS [None]
  - HYPERSENSITIVITY [None]
  - PYREXIA [None]
